FAERS Safety Report 7860504-6 (Version None)
Quarter: 2011Q4

REPORT INFORMATION
  Report Type: 
  Country: None (occurrence: None)
  Receive Date: 20111027
  Receipt Date: 20111021
  Transmission Date: 20120403
  Serious: No
  Sender: FDA-Public Use
  Company Number: US-PFIZER INC-2011256106

PATIENT
  Sex: Male

DRUGS (3)
  1. PRISTIQ [Suspect]
     Dosage: 50 MG, UNK
  2. PAXIL [Concomitant]
     Dosage: UNK
  3. PRISTIQ [Suspect]
     Dosage: 100 MG, UNK

REACTIONS (2)
  - DRUG INEFFECTIVE [None]
  - MEMORY IMPAIRMENT [None]
